FAERS Safety Report 19406572 (Version 3)
Quarter: 2022Q1

REPORT INFORMATION
  Report Type: Spontaneous
  Country: US (occurrence: US)
  Receive Date: 20210611
  Receipt Date: 20220109
  Transmission Date: 20220423
  Serious: No
  Sender: FDA-Public Use
  Company Number: US-SA-SAC20210610000423

PATIENT
  Age: 35 Year
  Sex: Male

DRUGS (2)
  1. DUPIXENT [Suspect]
     Active Substance: DUPILUMAB
     Indication: Psoriasis
     Dosage: 300 MG, QOW
     Route: 058
     Dates: start: 20210429
  2. DUPIXENT [Suspect]
     Active Substance: DUPILUMAB
     Indication: Drug dependence

REACTIONS (5)
  - Pain [Unknown]
  - Pruritus [Unknown]
  - Dry eye [Unknown]
  - Burning sensation [Unknown]
  - Product use in unapproved indication [Unknown]

NARRATIVE: CASE EVENT DATE: 20210101
